FAERS Safety Report 22965091 (Version 2)
Quarter: 2023Q4

REPORT INFORMATION
  Report Type: Report from Study
  Country: US (occurrence: US)
  Receive Date: 20230921
  Receipt Date: 20231115
  Transmission Date: 20240109
  Serious: Yes (Hospitalization, Other)
  Sender: FDA-Public Use
  Company Number: US-GILEAD-2023-0644307

PATIENT
  Sex: Female

DRUGS (1)
  1. AZTREONAM LYSINE [Suspect]
     Active Substance: AZTREONAM LYSINE
     Indication: Illness
     Dosage: 75 MG, TID [INHALE ONE VIA, VIA ALTERA NEBULIZER, FOR 28 DAYS THEN OFF 28 DAYS]
     Route: 055

REACTIONS (1)
  - Cystic fibrosis [Unknown]
